FAERS Safety Report 25023973 (Version 1)
Quarter: 2025Q1

REPORT INFORMATION
  Report Type: Spontaneous
  Country: FR (occurrence: FR)
  Receive Date: 20250228
  Receipt Date: 20250228
  Transmission Date: 20250408
  Serious: Yes (Death, Other)
  Sender: AUROBINDO
  Company Number: FR-GSK-FR2024GSK146101

PATIENT
  Age: 71 Year
  Sex: Female

DRUGS (6)
  1. CARBOPLATIN [Suspect]
     Active Substance: CARBOPLATIN
     Indication: Cervix neoplasm
     Route: 065
     Dates: start: 20241004
  2. CARBOPLATIN [Suspect]
     Active Substance: CARBOPLATIN
     Indication: Endometrial cancer recurrent
  3. PACLITAXEL [Suspect]
     Active Substance: PACLITAXEL
     Indication: Cervix neoplasm
     Route: 065
     Dates: start: 20241004
  4. PACLITAXEL [Suspect]
     Active Substance: PACLITAXEL
     Indication: Endometrial cancer recurrent
  5. DOSTARLIMAB [Suspect]
     Active Substance: DOSTARLIMAB
     Indication: Endometrial cancer recurrent
     Route: 065
     Dates: start: 20241004, end: 20241227
  6. DOSTARLIMAB [Suspect]
     Active Substance: DOSTARLIMAB
     Indication: Cervix neoplasm

REACTIONS (2)
  - Malignant neoplasm progression [Fatal]
  - General physical condition abnormal [Unknown]
